FAERS Safety Report 8942229 (Version 1)
Quarter: 2012Q4

REPORT INFORMATION
  Report Type: Spontaneous
  Country: US (occurrence: None)
  Receive Date: 20121129
  Receipt Date: 20121129
  Transmission Date: 20130627
  Serious: No
  Sender: FDA-Public Use
  Company Number: None

PATIENT
  Age: 71 Year
  Sex: Female

DRUGS (2)
  1. LETAIRIS [Suspect]
     Dosage: 5mg QD PO
     Route: 048
     Dates: start: 20120227
  2. LETAIRIS [Suspect]
     Dates: start: 20121128

REACTIONS (1)
  - Unevaluable event [None]
